FAERS Safety Report 25690932 (Version 2)
Quarter: 2025Q3

REPORT INFORMATION
  Report Type: Report from Study
  Country: US (occurrence: US)
  Receive Date: 20250818
  Receipt Date: 20250916
  Transmission Date: 20251021
  Serious: Yes (Hospitalization)
  Sender: PFIZER
  Company Number: US-PFIZER INC-PV202500091559

PATIENT
  Age: 48 Year
  Sex: Male

DRUGS (4)
  1. BRAFTOVI [Suspect]
     Active Substance: ENCORAFENIB
     Indication: Malignant melanoma
     Dosage: 450 MG, 1X/DAY (ONCE DAILY)
     Route: 048
     Dates: start: 20250723, end: 20250724
  2. BRAFTOVI [Suspect]
     Active Substance: ENCORAFENIB
     Dosage: 450 MG, 1X/DAY (ONCE DAILY)
     Route: 048
     Dates: start: 20250801
  3. MEKTOVI [Suspect]
     Active Substance: BINIMETINIB
     Indication: Malignant melanoma
     Dosage: 45 MG, 2X/DAY (TWICE DAILY)
     Route: 048
     Dates: start: 20250723, end: 20250724
  4. MEKTOVI [Suspect]
     Active Substance: BINIMETINIB
     Dosage: 45 MG, 2X/DAY (TWICE DAILY)
     Route: 048
     Dates: start: 20250801

REACTIONS (6)
  - Hypercalcaemia [Recovered/Resolved]
  - Somnolence [Unknown]
  - Condition aggravated [Unknown]
  - Amnesia [Recovered/Resolved]
  - Mental status changes [Recovered/Resolved]
  - Hepatic enzyme increased [Recovered/Resolved]

NARRATIVE: CASE EVENT DATE: 20250101
